FAERS Safety Report 24557471 (Version 1)
Quarter: 2024Q4

REPORT INFORMATION
  Report Type: Spontaneous
  Country: US (occurrence: US)
  Receive Date: 20241028
  Receipt Date: 20241028
  Transmission Date: 20250115
  Serious: No
  Sender: MEITHEAL PHARMACEUTICALS
  Company Number: US-MEITHEAL-2024MPSPO00283

PATIENT

DRUGS (2)
  1. REGADENOSON [Suspect]
     Active Substance: REGADENOSON
     Indication: Product used for unknown indication
     Route: 065
  2. REGADENOSON [Suspect]
     Active Substance: REGADENOSON

REACTIONS (3)
  - Nausea [Unknown]
  - Vomiting [Unknown]
  - Tremor [Unknown]
